FAERS Safety Report 5710057-3 (Version None)
Quarter: 2008Q2

REPORT INFORMATION
  Report Type: 
  Country: None (occurrence: None)
  Receive Date: 20080418
  Receipt Date: 20070918
  Transmission Date: 20081010
  Serious: No
  Sender: FDA-Public Use
  Company Number: US-ASTRAZENECA-2007UW22036

PATIENT
  Age: 60 Year
  Sex: Female
  Weight: 72.6 kg

DRUGS (5)
  1. METOPROLOL SUCCINATE [Suspect]
     Route: 048
     Dates: start: 20070828
  2. CRESTOR [Concomitant]
  3. NEXIUM [Concomitant]
  4. SYNTHROID [Concomitant]
  5. HYDROCHLOROTHIAZIDE [Concomitant]

REACTIONS (3)
  - BLOOD GLUCOSE DECREASED [None]
  - DIZZINESS [None]
  - FATIGUE [None]
